FAERS Safety Report 7407898-3 (Version None)
Quarter: 2011Q2

REPORT INFORMATION
  Report Type: 
  Country: None (occurrence: None)
  Receive Date: 20110412
  Receipt Date: 20110406
  Transmission Date: 20111010
  Serious: Yes (Other)
  Sender: FDA-Public Use
  Company Number: US-PFIZER INC-2011076606

PATIENT
  Sex: Male
  Weight: 55.782 kg

DRUGS (4)
  1. ALBUTEROL [Concomitant]
     Indication: CHRONIC OBSTRUCTIVE PULMONARY DISEASE
     Dosage: 3 MG, UNK
  2. ALBUTEROL [Concomitant]
     Indication: EMPHYSEMA
  3. PREDNISONE [Concomitant]
     Dosage: 10 MG, 1X/DAY
  4. TOVIAZ [Suspect]
     Indication: URINARY INCONTINENCE
     Dosage: 8 MG, 1X/DAY
     Route: 048
     Dates: start: 20110328

REACTIONS (1)
  - URINARY RETENTION [None]
